FAERS Safety Report 9703879 (Version 2)
Quarter: 2014Q1

REPORT INFORMATION
  Report Type: Spontaneous
  Country: GB (occurrence: GB)
  Receive Date: 20131122
  Receipt Date: 20140107
  Transmission Date: 20141002
  Serious: Yes (Other)
  Sender: FDA-Public Use
  Company Number: GB-US-EMD SERONO, INC.-7250686

PATIENT
  Age: 36 Year
  Sex: Female

DRUGS (5)
  1. REBIF [Suspect]
     Indication: RELAPSING-REMITTING MULTIPLE SCLEROSIS
     Route: 058
     Dates: start: 20130822
  2. AMOXICILLIN [Concomitant]
     Indication: PRODUCT USED FOR UNKNOWN INDICATION
  3. PREDNISOLONE [Concomitant]
     Indication: PRODUCT USED FOR UNKNOWN INDICATION
  4. ACAMPROSATE [Concomitant]
     Indication: ALCOHOL USE
     Route: 048
     Dates: start: 20131025
  5. THIAMINE [Concomitant]
     Indication: PRODUCT USED FOR UNKNOWN INDICATION

REACTIONS (2)
  - Lower respiratory tract infection [Not Recovered/Not Resolved]
  - Nasopharyngitis [Recovered/Resolved]
